FAERS Safety Report 8486244-0 (Version None)
Quarter: 2012Q3

REPORT INFORMATION
  Report Type: 
  Country: None (occurrence: None)
  Receive Date: 20120703
  Receipt Date: 20120626
  Transmission Date: 20120928
  Serious: Yes (Congenital Anomaly)
  Sender: FDA-Public Use
  Company Number: DE-TEVA-345222GER

PATIENT
  Sex: Male
  Weight: 2.8 kg

DRUGS (3)
  1. CITALOPRAM HYDROBROMIDE [Suspect]
     Route: 064
  2. IMPFSTOFF GRIPPE (SEASONAL) [Concomitant]
     Route: 064
  3. FOLIO [Concomitant]
     Route: 064

REACTIONS (8)
  - ANAL ATRESIA [None]
  - VESICOURETERIC REFLUX [None]
  - TRACHEO-OESOPHAGEAL FISTULA [None]
  - OESOPHAGEAL ATRESIA [None]
  - SPINE MALFORMATION [None]
  - ATRIAL SEPTAL DEFECT [None]
  - RECTOURETHRAL FISTULA [None]
  - HYDROCELE [None]
